FAERS Safety Report 22112051 (Version 5)
Quarter: 2023Q4

REPORT INFORMATION
  Report Type: Spontaneous
  Country: CA (occurrence: CA)
  Receive Date: 20230318
  Receipt Date: 20231014
  Transmission Date: 20240110
  Serious: Yes (Other)
  Sender: FDA-Public Use
  Company Number: CA-CELLTRION INC.-2023CA003855

PATIENT

DRUGS (8)
  1. INFLECTRA [Suspect]
     Active Substance: INFLIXIMAB-DYYB
     Indication: Crohn^s disease
     Dosage: 1 DF, HOSPITAL START (W 0,2).
     Route: 042
     Dates: start: 20230126
  2. INFLECTRA [Suspect]
     Active Substance: INFLIXIMAB-DYYB
     Dosage: 1 DF,HL START (WK 0,2).
     Route: 042
     Dates: start: 20230209
  3. INFLECTRA [Suspect]
     Active Substance: INFLIXIMAB-DYYB
     Dosage: 400 MG (11.11 MG/KG), (10 MG/KG TO NEAREST VIAL W 6 THEN EVERY 4 W, (W 0, W 2, W 6 THEN Q 4 W)
     Route: 042
     Dates: start: 20230309
  4. INFLECTRA [Suspect]
     Active Substance: INFLIXIMAB-DYYB
     Dosage: 400 MG (11.11 MG/KG), (10 MG/KG TO NEAREST VIAL W 6 THEN EVERY 4 W, (W 0, W 2, W 6 THEN Q 4 W)
     Route: 042
     Dates: start: 20230406
  5. INFLECTRA [Suspect]
     Active Substance: INFLIXIMAB-DYYB
     Dosage: 400 MG (11.11 MG/KG), (10 MG/KG TO NEAREST VIAL W 6 THEN EVERY 4 W, (W 0, W 2, W 6 THEN Q 4 W)
     Route: 042
     Dates: start: 20230629
  6. INFLECTRA [Suspect]
     Active Substance: INFLIXIMAB-DYYB
     Dosage: 400 MG, (10MG/KG), 7 WEEKS AND 3 DAYS
     Route: 042
     Dates: start: 20230814
  7. INFLECTRA [Suspect]
     Active Substance: INFLIXIMAB-DYYB
     Dosage: 10 MG/KG WEEK 6 THEN EVERY 4 WEEKSROUNDED TO NEAREST VIAL
     Route: 042
     Dates: start: 20230914
  8. MESALAMINE [Concomitant]
     Active Substance: MESALAMINE
     Dosage: UNK

REACTIONS (9)
  - Haematochezia [Not Recovered/Not Resolved]
  - Condition aggravated [Unknown]
  - Poor venous access [Unknown]
  - Fatigue [Not Recovered/Not Resolved]
  - Off label use [Unknown]
  - Off label use [Unknown]
  - Off label use [Unknown]
  - Intentional product use issue [Unknown]
  - Inappropriate schedule of product administration [Unknown]

NARRATIVE: CASE EVENT DATE: 20230101
